FAERS Safety Report 12207441 (Version 1)
Quarter: 2016Q1

REPORT INFORMATION
  Report Type: Spontaneous
  Country: CN (occurrence: CN)
  Receive Date: 20160324
  Receipt Date: 20160324
  Transmission Date: 20160526
  Serious: Yes (Other)
  Sender: FDA-Public Use
  Company Number: CN-PFIZER INC-2016167409

PATIENT
  Sex: Male

DRUGS (1)
  1. VIAGRA [Suspect]
     Active Substance: SILDENAFIL CITRATE
     Dosage: 100 MG, AS NEEDED
     Route: 048

REACTIONS (7)
  - Erythema [Not Recovered/Not Resolved]
  - Intentional product misuse [Unknown]
  - Orbital oedema [Not Recovered/Not Resolved]
  - Erythema [Recovered/Resolved]
  - Trachoma [Not Recovered/Not Resolved]
  - Keratitis [Not Recovered/Not Resolved]
  - Feeling hot [Recovered/Resolved]
